FAERS Safety Report 7808456-9 (Version None)
Quarter: 2011Q4

REPORT INFORMATION
  Report Type: 
  Country: None (occurrence: None)
  Receive Date: 20111007
  Receipt Date: 20110923
  Transmission Date: 20120403
  Serious: Yes (Other)
  Sender: FDA-Public Use
  Company Number: 1000020280

PATIENT
  Age: 48 Year
  Sex: Female

DRUGS (1)
  1. CELEXA [Suspect]
     Indication: DEPRESSION
     Dosage: 10 MG, (10 MG, 1 IN 1 D) , ORAL
     Route: 048
     Dates: start: 20100820, end: 20100825

REACTIONS (4)
  - PALPITATIONS [None]
  - AUTONOMIC DYSREFLEXIA [None]
  - PANIC ATTACK [None]
  - ANXIETY [None]
